FAERS Safety Report 23227911 (Version 1)
Quarter: 2023Q4

REPORT INFORMATION
  Report Type: Spontaneous
  Country: CH (occurrence: CH)
  Receive Date: 20231125
  Receipt Date: 20231125
  Transmission Date: 20240110
  Serious: Yes (Other)
  Sender: FDA-Public Use
  Company Number: CH-CELLTRION INC.-2023CH022690

PATIENT

DRUGS (1)
  1. INFLIXIMAB [Suspect]
     Active Substance: INFLIXIMAB
     Indication: Arthritis
     Dosage: 300 MILLIGRAM EVERY 6 WEEKS
     Route: 042
     Dates: start: 20230124

REACTIONS (4)
  - Haemangioma of liver [Unknown]
  - Inflammatory marker increased [Unknown]
  - Cholecystitis [Unknown]
  - Hepatic enzyme increased [Unknown]

NARRATIVE: CASE EVENT DATE: 20231001
